FAERS Safety Report 22337864 (Version 1)
Quarter: 2023Q2

REPORT INFORMATION
  Report Type: Spontaneous
  Country: US (occurrence: None)
  Receive Date: 20230518
  Receipt Date: 20230518
  Transmission Date: 20230721
  Serious: No
  Sender: FDA-Public Use
  Company Number: US-ROCHE-3274567

PATIENT
  Age: 75 Year
  Sex: Female
  Weight: 88.53 kg

DRUGS (5)
  1. ACTEMRA [Suspect]
     Active Substance: TOCILIZUMAB
     Indication: Giant cell arteritis
     Dosage: DOSE: 162MG/0.9ML; LAST DOSE: 20-JAN-2023
     Route: 058
     Dates: start: 202002
  2. ACTEMRA [Suspect]
     Active Substance: TOCILIZUMAB
  3. PREDNISONE [Suspect]
     Active Substance: PREDNISONE
     Indication: Giant cell arteritis
     Dosage: NO ONGOING
     Route: 065
     Dates: start: 202001
  4. PREDNISONE [Suspect]
     Active Substance: PREDNISONE
     Route: 065
  5. STATIN (UNK INGREDIENTS) [Concomitant]
     Indication: Blood cholesterol increased

REACTIONS (7)
  - Exposure via skin contact [Unknown]
  - Weight increased [Not Recovered/Not Resolved]
  - COVID-19 [Recovered/Resolved]
  - Giant cell arteritis [Not Recovered/Not Resolved]
  - Weight decreased [Unknown]
  - Device issue [Unknown]
  - Inappropriate schedule of product administration [Unknown]

NARRATIVE: CASE EVENT DATE: 20220201
